FAERS Safety Report 6338643-0 (Version None)
Quarter: 2009Q3

REPORT INFORMATION
  Report Type: 
  Country: None (occurrence: None)
  Receive Date: 20090903
  Receipt Date: 20090825
  Transmission Date: 20100115
  Serious: Yes (Hospitalization)
  Sender: FDA-Public Use
  Company Number: FR-BIOGENIDEC-2009BI026993

PATIENT
  Age: 47 Year
  Sex: Male

DRUGS (6)
  1. TYSABRI [Suspect]
     Indication: MULTIPLE SCLEROSIS
     Route: 042
     Dates: start: 20071122
  2. PARACETAMOL [Concomitant]
     Indication: MULTIPLE SCLEROSIS
     Route: 048
  3. BACLOFEN [Concomitant]
     Indication: MULTIPLE SCLEROSIS
     Route: 048
  4. PAROXETINE [Concomitant]
     Indication: MULTIPLE SCLEROSIS
     Route: 048
  5. TROSPIUM CHLORIDE [Concomitant]
     Indication: MULTIPLE SCLEROSIS
     Route: 048
     Dates: start: 20090401
  6. OXYBUTYNINE CHLORYDRATE [Concomitant]
     Indication: MULTIPLE SCLEROSIS
     Route: 048
     Dates: start: 20090401

REACTIONS (2)
  - ESCHERICHIA INFECTION [None]
  - PYELONEPHRITIS [None]
